FAERS Safety Report 18170589 (Version 1)
Quarter: 2020Q3

REPORT INFORMATION
  Report Type: Report from Study
  Country: US (occurrence: US)
  Receive Date: 20200819
  Receipt Date: 20200819
  Transmission Date: 20201103
  Serious: Yes (Other)
  Sender: FDA-Public Use
  Company Number: NVSC2020US227262

PATIENT
  Sex: Male

DRUGS (1)
  1. COSENTYX [Suspect]
     Active Substance: SECUKINUMAB
     Indication: PSORIASIS
     Dosage: 300 MG, UNKNOWN (INJECT 2 PENS (300MG) SQ AT WEEKS 0, 1, 2, 3, AND 4. THEN INJECT 2 PENS (300MG) ONC
     Route: 058

REACTIONS (3)
  - COVID-19 [Recovered/Resolved]
  - Cough [Recovered/Resolved]
  - Feeling abnormal [Unknown]
